FAERS Safety Report 7801306-6 (Version None)
Quarter: 2011Q4

REPORT INFORMATION
  Report Type: 
  Country: None (occurrence: None)
  Receive Date: 20111006
  Receipt Date: 20111006
  Transmission Date: 20120403
  Serious: Yes (Hospitalization)
  Sender: FDA-Public Use
  Company Number: None

PATIENT
  Age: 21 Year
  Sex: Female
  Weight: 109.3 kg

DRUGS (8)
  1. AMLODIPINE [Concomitant]
  2. PRILOSEC [Concomitant]
  3. ENALAPRIL MALEATE [Suspect]
     Indication: HYPERTENSION
     Dosage: 10MG DAILY PO CHRONIC
     Route: 048
  4. COREG [Concomitant]
  5. PREDNISONE [Concomitant]
  6. BACTRIM [Suspect]
     Indication: URINARY TRACT INFECTION
     Dosage: DAILY PO RECENT
     Route: 048
  7. BACTRIM [Suspect]
     Indication: OROPHARYNGEAL PAIN
     Dosage: DAILY PO RECENT
     Route: 048
  8. MYCOPHENOLATE MOFETIL (CELLCEPT) [Concomitant]

REACTIONS (1)
  - ANGIOEDEMA [None]
